FAERS Safety Report 5085523-7 (Version None)
Quarter: 2006Q3

REPORT INFORMATION
  Report Type: 
  Country: None (occurrence: None)
  Receive Date: 20060817
  Receipt Date: 20060803
  Transmission Date: 20061208
  Serious: Yes (Other)
  Sender: FDA-Public Use
  Company Number: 2006097286

PATIENT
  Age: 43 Year
  Sex: Female

DRUGS (2)
  1. BEXTRA [Suspect]
     Indication: CARPAL TUNNEL SYNDROME
     Dosage: 40 MG (20 MG, 2 IN 1 D)
     Dates: start: 20030501
  2. BEXTRA [Suspect]
     Indication: TENDONITIS
     Dosage: 40 MG (20 MG, 2 IN 1 D)
     Dates: start: 20030501

REACTIONS (3)
  - DYSPNOEA [None]
  - LUNG DISORDER [None]
  - SKIN LESION [None]
